FAERS Safety Report 9907921 (Version 2)
Quarter: 2014Q1

REPORT INFORMATION
  Report Type: Spontaneous
  Country: US (occurrence: US)
  Receive Date: 20140219
  Receipt Date: 20140219
  Transmission Date: 20141002
  Serious: Yes (Other)
  Sender: FDA-Public Use
  Company Number: US-GE HEALTHCARE MEDICAL DIAGNOSTICS-OSCN-PR-0907S-0364

PATIENT
  Age: 34 Year
  Sex: Male

DRUGS (28)
  1. OMNISCAN [Suspect]
     Indication: PRODUCT USED FOR UNKNOWN INDICATION
     Route: 042
     Dates: start: 20030312, end: 20030312
  2. GADOLINIUM (UNSPECIFIED) [Suspect]
     Indication: PRODUCT USED FOR UNKNOWN INDICATION
     Route: 042
     Dates: start: 20020917, end: 20020917
  3. GADOLINIUM (UNSPECIFIED) [Suspect]
     Route: 042
     Dates: start: 20030505, end: 20030505
  4. GADOLINIUM (UNSPECIFIED) [Suspect]
     Route: 042
     Dates: start: 20040212, end: 20040212
  5. GADOLINIUM (UNSPECIFIED) [Suspect]
     Route: 042
     Dates: start: 20040329, end: 20040329
  6. GADOLINIUM (UNSPECIFIED) [Suspect]
     Route: 042
     Dates: start: 20040804, end: 20040804
  7. GADOLINIUM (UNSPECIFIED) [Suspect]
     Route: 042
     Dates: start: 20040806, end: 20040806
  8. MAGNEVIST [Suspect]
     Indication: PRODUCT USED FOR UNKNOWN INDICATION
     Route: 042
     Dates: start: 20030116, end: 20030116
  9. MAGNEVIST [Suspect]
     Route: 042
     Dates: start: 20030708, end: 20030708
  10. MAGNEVIST [Suspect]
     Route: 042
     Dates: start: 20030828, end: 20030828
  11. MAGNEVIST [Suspect]
     Route: 042
     Dates: start: 20050324, end: 20050324
  12. MAGNEVIST [Suspect]
     Route: 042
     Dates: start: 20050324, end: 20050324
  13. MAGNEVIST [Suspect]
     Route: 042
     Dates: start: 20050929, end: 20050929
  14. MAGNEVIST [Suspect]
     Route: 042
     Dates: start: 20050929, end: 20050929
  15. MAGNEVIST [Suspect]
     Route: 042
     Dates: start: 20051026, end: 20051026
  16. MAGNEVIST [Suspect]
     Route: 042
     Dates: start: 20060202, end: 20060202
  17. MAGNEVIST [Suspect]
     Route: 042
     Dates: start: 20060208, end: 20060208
  18. MAGNEVIST [Suspect]
     Route: 042
     Dates: start: 20060421, end: 20060421
  19. MAGNEVIST [Suspect]
     Route: 042
     Dates: start: 20060914, end: 20060914
  20. MAGNEVIST [Suspect]
     Route: 042
     Dates: start: 20060914, end: 20060914
  21. MAGNEVIST [Suspect]
     Route: 042
     Dates: start: 20060930, end: 20060930
  22. MAGNEVIST [Suspect]
     Route: 042
     Dates: start: 20061114, end: 20061114
  23. MAGNEVIST [Suspect]
     Route: 042
     Dates: start: 20070131, end: 20070131
  24. MAGNEVIST [Suspect]
     Route: 042
     Dates: start: 20070426, end: 20070426
  25. MAGNEVIST [Suspect]
     Route: 042
     Dates: start: 20070426, end: 20070426
  26. MAGNEVIST [Suspect]
     Route: 042
     Dates: start: 20070627, end: 20070627
  27. MAGNEVIST [Suspect]
     Route: 042
     Dates: start: 20070807, end: 20070807
  28. MAGNEVIST [Suspect]
     Route: 042
     Dates: start: 20070807, end: 20070807

REACTIONS (1)
  - Nephrogenic systemic fibrosis [Not Recovered/Not Resolved]
